FAERS Safety Report 23258364 (Version 4)
Quarter: 2025Q1

REPORT INFORMATION
  Report Type: Spontaneous
  Country: US (occurrence: US)
  Receive Date: 20231204
  Receipt Date: 20250205
  Transmission Date: 20250408
  Serious: Yes (Other)
  Sender: ELI LILLY AND COMPANY
  Company Number: US-ELI_LILLY_AND_COMPANY-US202312000240

PATIENT
  Age: 69 Year
  Sex: Female

DRUGS (1)
  1. VERZENIO [Suspect]
     Active Substance: ABEMACICLIB
     Indication: Breast cancer female
     Dosage: 50 MG, BID
     Route: 048

REACTIONS (6)
  - Spinal fracture [Unknown]
  - Peripheral swelling [Unknown]
  - Pain in extremity [Unknown]
  - Full blood count decreased [Unknown]
  - Urinary tract infection [Unknown]
  - Nausea [Unknown]
